FAERS Safety Report 17982396 (Version 2)
Quarter: 2020Q3

REPORT INFORMATION
  Report Type: Report from Study
  Country: IT (occurrence: IT)
  Receive Date: 20200706
  Receipt Date: 20200721
  Transmission Date: 20201103
  Serious: Yes (Hospitalization)
  Sender: FDA-Public Use
  Company Number: IT-TEVA-2020-IT-1795500

PATIENT
  Age: 18 Year
  Sex: Female

DRUGS (4)
  1. SERENASE [HALOPERIDOL] [Interacting]
     Active Substance: HALOPERIDOL
     Indication: PERSONALITY DISORDER
     Dosage: 10 MG
     Route: 048
     Dates: start: 20190624, end: 20200518
  2. QUETIAPINE FUMARATE. [Interacting]
     Active Substance: QUETIAPINE FUMARATE
     Indication: AGITATION
     Dosage: 600 MG
     Route: 048
     Dates: start: 20200101, end: 20200518
  3. AKINETON [Interacting]
     Active Substance: BIPERIDEN HYDROCHLORIDE
     Indication: PARKINSONISM
     Dosage: 1 DOSAGE FORMS
     Route: 048
     Dates: start: 20200101, end: 20200518
  4. FLUOXETINE [Suspect]
     Active Substance: FLUOXETINE HYDROCHLORIDE
     Indication: DEPRESSION
     Dosage: 40 MG
     Route: 048
     Dates: start: 20200101, end: 20200518

REACTIONS (3)
  - Drug interaction [Recovering/Resolving]
  - Drug abuse [Recovering/Resolving]
  - Psychomotor hyperactivity [Recovering/Resolving]

NARRATIVE: CASE EVENT DATE: 20200517
